FAERS Safety Report 4772556-0 (Version None)
Quarter: 2005Q3

REPORT INFORMATION
  Report Type: 
  Country: None (occurrence: None)
  Receive Date: 20050914
  Receipt Date: 20050914
  Transmission Date: 20060218
  Serious: Yes (Hospitalization)
  Sender: FDA-Public Use
  Company Number: None

PATIENT
  Age: 52 Year
  Sex: Male
  Weight: 67 kg

DRUGS (16)
  1. AVASTIN [Suspect]
     Indication: CHEMOTHERAPY
     Dosage: 5 MG/KG IV Q 14D
     Route: 042
     Dates: start: 20050627, end: 20050817
  2. AVASTIN [Suspect]
  3. IRINOTECAN HCL [Suspect]
     Dosage: IV Q14 D
     Route: 042
     Dates: start: 20050627, end: 20050817
  4. FLUOROURACIL [Suspect]
     Dosage: IV Q14 D
     Route: 042
     Dates: start: 20050627, end: 20050817
  5. LEUCOVORIN [Suspect]
     Dosage: IV Q14 D
     Route: 042
     Dates: start: 20050627, end: 20050817
  6. DULCOLAX [Concomitant]
  7. LEXAPRO [Concomitant]
  8. OXYCONTIN [Concomitant]
  9. SONATA [Concomitant]
  10. IMODIUM [Concomitant]
  11. COMPAZINE [Concomitant]
  12. XANADERM OINTMENT [Concomitant]
  13. IRINOTECAN HCL [Concomitant]
  14. 5FU [Concomitant]
  15. LEUCOVORIN [Concomitant]
  16. FLUOROURACIL [Concomitant]

REACTIONS (5)
  - DEEP VEIN THROMBOSIS [None]
  - DISEASE PROGRESSION [None]
  - FALL [None]
  - FEMUR FRACTURE [None]
  - METASTASES TO BONE [None]
